FAERS Safety Report 7900939-6 (Version None)
Quarter: 2011Q4

REPORT INFORMATION
  Report Type: 
  Country: None (occurrence: None)
  Receive Date: 20111108
  Receipt Date: 20111026
  Transmission Date: 20120403
  Serious: Yes (Hospitalization)
  Sender: FDA-Public Use
  Company Number: US-ELI_LILLY_AND_COMPANY-US201110007563

PATIENT
  Age: 28 Year
  Sex: Male

DRUGS (5)
  1. CLONAZEPAM [Concomitant]
  2. ZYPREXA [Suspect]
     Dosage: 30 MG, QD
  3. CYMBALTA [Suspect]
     Indication: DEPRESSION
     Dosage: 60 MG, UNK
  4. ZYPREXA [Suspect]
     Indication: SCHIZOPHRENIA
     Dosage: 20 UG, QD
     Dates: start: 20110701
  5. BENZTROPINE MESYLATE [Concomitant]

REACTIONS (3)
  - OVERDOSE [None]
  - SCHIZOPHRENIA [None]
  - DRUG INEFFECTIVE [None]
